FAERS Safety Report 16255098 (Version 1)
Quarter: 2019Q2

REPORT INFORMATION
  Report Type: Report from Study
  Country: US (occurrence: US)
  Receive Date: 20190430
  Receipt Date: 20190430
  Transmission Date: 20190711
  Serious: Yes (Other)
  Sender: FDA-Public Use
  Company Number: US-TEVA-2019-US-1043725

PATIENT
  Age: 47 Year
  Sex: Male

DRUGS (3)
  1. NAPROXEN. [Suspect]
     Active Substance: NAPROXEN
     Indication: ANKYLOSING SPONDYLITIS
     Route: 065
  2. ETANERCEPT [Suspect]
     Active Substance: ETANERCEPT
     Indication: ANKYLOSING SPONDYLITIS
     Route: 065
  3. AMLODIPINE/BENAZEPRIL [Concomitant]
     Active Substance: AMLODIPINE BESYLATE\BENAZEPRIL HYDROCHLORIDE
     Indication: PRODUCT USED FOR UNKNOWN INDICATION
     Route: 065

REACTIONS (7)
  - Chronic gastritis [Recovered/Resolved]
  - Duodenitis [Recovered/Resolved]
  - Paradoxical drug reaction [Recovered/Resolved]
  - Protein-losing gastroenteropathy [Recovered/Resolved]
  - Duodenal ulcer [Recovered/Resolved]
  - Granuloma [Recovered/Resolved]
  - Colitis [Recovered/Resolved]
